FAERS Safety Report 18087253 (Version 1)
Quarter: 2020Q3

REPORT INFORMATION
  Report Type: Spontaneous
  Country: US (occurrence: US)
  Receive Date: 20200729
  Receipt Date: 20200729
  Transmission Date: 20201103
  Serious: No
  Sender: FDA-Public Use
  Company Number: US-BAYER-2020-153168

PATIENT
  Age: 62 Year
  Sex: Female

DRUGS (2)
  1. BETASERON [Suspect]
     Active Substance: INTERFERON BETA-1B
     Indication: MULTIPLE SCLEROSIS
     Dosage: 0.3 MG
  2. AUBAGIO [Concomitant]
     Active Substance: TERIFLUNOMIDE
     Dosage: UNK

REACTIONS (2)
  - Abdominal discomfort [None]
  - Diarrhoea [None]
